FAERS Safety Report 14262103 (Version 2)
Quarter: 2017Q4

REPORT INFORMATION
  Report Type: Spontaneous
  Country: KR (occurrence: KR)
  Receive Date: 20171208
  Receipt Date: 20171219
  Transmission Date: 20180321
  Serious: Yes (Other)
  Sender: FDA-Public Use
  Company Number: KR-GLENMARK PHARMACEUTICALS-2017GMK029950

PATIENT
  Age: 24 Year
  Sex: Male
  Weight: 36.6 kg

DRUGS (7)
  1. GONADORELIN [Concomitant]
     Active Substance: GONADORELIN
     Indication: PRODUCT USED FOR UNKNOWN INDICATION
     Dosage: 100 ?G, UNK
     Route: 042
  2. INSULIN [Concomitant]
     Active Substance: INSULIN NOS
     Indication: PRODUCT USED FOR UNKNOWN INDICATION
     Dosage: 0.1 IU/KG, UNK
     Route: 042
  3. HYDROCORTISONE BUTYRATE. [Suspect]
     Active Substance: HYDROCORTISONE BUTYRATE
     Indication: HYPOTENSION
     Dosage: 10 MG, BID (12 HOURS)
     Route: 048
     Dates: start: 2016
  4. HUMAN GROWTH HORMONE, RECOMBINANT [Concomitant]
     Active Substance: SOMATROPIN
     Indication: PRODUCT USED FOR UNKNOWN INDICATION
     Dosage: 0.3 MG/KG, QW
     Route: 065
  5. LEVOTHYROXINE. [Concomitant]
     Active Substance: LEVOTHYROXINE
     Indication: HYPOTHYROIDISM
     Dosage: 50 ?G, UNK
     Route: 042
  6. HYDROCORTISONE BUTYRATE. [Suspect]
     Active Substance: HYDROCORTISONE BUTYRATE
     Indication: CORTISOL DECREASED
  7. PROTIRELIN TARTRATE [Concomitant]
     Indication: PRODUCT USED FOR UNKNOWN INDICATION
     Dosage: 700 ?G, UNK
     Route: 042

REACTIONS (1)
  - Diabetes insipidus [Recovering/Resolving]

NARRATIVE: CASE EVENT DATE: 201607
